FAERS Safety Report 9675503 (Version 1)
Quarter: 2013Q4

REPORT INFORMATION
  Report Type: Spontaneous
  Country: US (occurrence: US)
  Receive Date: 20131107
  Receipt Date: 20131107
  Transmission Date: 20140711
  Serious: No
  Sender: FDA-Public Use
  Company Number: US-009507513-1310USA010061

PATIENT
  Age: 21 Year
  Sex: Female
  Weight: 90.7 kg

DRUGS (4)
  1. NUVARING [Suspect]
     Indication: ACNE
     Dosage: 3 WEEKS IN 1 WEEK OUT
     Route: 067
     Dates: start: 20131011
  2. NUVARING [Suspect]
     Indication: MENSTRUAL CYCLE MANAGEMENT
  3. NUVARING [Suspect]
     Indication: CONTRACEPTION
  4. XANAX [Concomitant]
     Indication: ANXIETY

REACTIONS (1)
  - Menorrhagia [Not Recovered/Not Resolved]
